FAERS Safety Report 9361214 (Version 2)
Quarter: 2013Q3

REPORT INFORMATION
  Report Type: Spontaneous
  Country: IT (occurrence: IT)
  Receive Date: 20130621
  Receipt Date: 20130812
  Transmission Date: 20140515
  Serious: Yes (Hospitalization, Other)
  Sender: FDA-Public Use
  Company Number: IT-BRISTOL-MYERS SQUIBB COMPANY-19011402

PATIENT
  Age: 79 Year
  Sex: Female

DRUGS (6)
  1. COUMADIN TABS 5 MG [Suspect]
     Route: 048
     Dates: start: 20030101, end: 20130604
  2. EUTIROX [Concomitant]
     Route: 048
  3. CONGESCOR [Concomitant]
  4. OLMESARTAN MEDOXOMIL + HCTZ [Concomitant]
     Indication: HYPERTENSION
     Route: 048
  5. FLAGYL [Concomitant]
     Dosage: TABS
     Route: 048
  6. CIPROXIN [Concomitant]
     Dosage: CIPROXIN 500 MG TAB
     Route: 048
     Dates: start: 20130529, end: 20130605

REACTIONS (2)
  - International normalised ratio increased [Recovering/Resolving]
  - Renal failure acute [Unknown]
